FAERS Safety Report 9401281 (Version 2)
Quarter: 2013Q3

REPORT INFORMATION
  Report Type: Report from Study
  Country: CH (occurrence: CH)
  Receive Date: 20130715
  Receipt Date: 20130910
  Transmission Date: 20140515
  Serious: Yes (Hospitalization, Disabling, Other)
  Sender: FDA-Public Use
  Company Number: CH-TEVA-398953USA

PATIENT
  Age: 69 Year
  Sex: Male
  Weight: 70.5 kg

DRUGS (10)
  1. BENDAMUSTINE [Suspect]
     Indication: PLASMA CELL MYELOMA
     Dosage: UID/QD
     Route: 042
     Dates: start: 20120807, end: 20130508
  2. DEXAMETHASONE [Suspect]
     Indication: PLASMA CELL MYELOMA
     Dosage: Q 4 WEEKS
     Route: 048
     Dates: start: 20120807, end: 20130108
  3. DEXAMETHASONE [Suspect]
     Dosage: Q 4 WEEKS
     Route: 048
     Dates: start: 20130207, end: 20130508
  4. DEXAMETHASONE [Suspect]
     Dosage: Q 4 WEEKS
     Route: 048
     Dates: start: 20130430, end: 20130508
  5. REVLIMID [Suspect]
     Indication: PLASMA CELL MYELOMA
     Dosage: Q 4 WEEKS
     Route: 048
     Dates: start: 20120807, end: 20130108
  6. REVLIMID [Suspect]
     Dosage: Q 4 WEEKS
     Route: 048
     Dates: start: 20130207, end: 20130508
  7. SULFAMETHOXAZOLE/TRIMETHOPRIM [Concomitant]
     Dates: start: 20120709, end: 201305
  8. ENOXAPARIN [Concomitant]
     Dates: start: 20120809, end: 201305
  9. METAMIZOL [Concomitant]
     Dates: start: 20121211, end: 201305
  10. ZOLEDRONIC ACID [Concomitant]
     Dates: start: 20120606, end: 201305

REACTIONS (1)
  - Angiocentric lymphoma [Not Recovered/Not Resolved]
